FAERS Safety Report 6358970-0 (Version None)
Quarter: 2009Q3

REPORT INFORMATION
  Report Type: 
  Country: None (occurrence: None)
  Receive Date: 20090914
  Receipt Date: 20090902
  Transmission Date: 20100115
  Serious: Yes (Other)
  Sender: FDA-Public Use
  Company Number: 2009AP003558

PATIENT
  Age: 33 Year
  Sex: Female

DRUGS (4)
  1. HALOPERIDOL [Suspect]
     Indication: AGITATION
     Dosage: 5 MG; BID; IM; UNKNOWN
     Route: 030
  2. HALOPERIDOL LACTATE [Suspect]
  3. HALOPERIDOL LACTATE [Suspect]
  4. LEVOMEPROMAZINE HYDROCHLORIDE (LEVOMEPROMAZINE HYDROCHLORIDE) [Concomitant]

REACTIONS (2)
  - NEUROLEPTIC MALIGNANT SYNDROME [None]
  - OLIGURIA [None]
